FAERS Safety Report 7374917-2 (Version None)
Quarter: 2011Q1

REPORT INFORMATION
  Report Type: 
  Country: None (occurrence: None)
  Receive Date: 20110325
  Receipt Date: 20110316
  Transmission Date: 20110831
  Serious: Yes (Death)
  Sender: FDA-Public Use
  Company Number: US-MYLANLABS-2011S1005609

PATIENT
  Age: 56 Year
  Sex: Female

DRUGS (8)
  1. FENTANYL-100 [Suspect]
  2. CYCLOBENZAPRINE [Concomitant]
  3. GABAPENTIN [Concomitant]
  4. TEMAZEPAM [Concomitant]
  5. LEXAPRO [Concomitant]
  6. TRAMADOL HCL [Concomitant]
  7. LYRICA [Concomitant]
  8. ALPRAZOLAM [Concomitant]

REACTIONS (1)
  - OVERDOSE [None]
